FAERS Safety Report 16297748 (Version 2)
Quarter: 2019Q2

REPORT INFORMATION
  Report Type: Spontaneous
  Country: SK (occurrence: SK)
  Receive Date: 20190510
  Receipt Date: 20190528
  Transmission Date: 20190711
  Serious: Yes (Hospitalization, Disabling, Other)
  Sender: FDA-Public Use
  Company Number: SK-REGENERON PHARMACEUTICALS, INC.-2019-26167

PATIENT

DRUGS (1)
  1. EYLEA [Suspect]
     Active Substance: AFLIBERCEPT
     Indication: DIABETIC RETINAL OEDEMA
     Dosage: OD, TOTAL OF 5 EYLEA DOSES, LAST DOSE WAS RECEVIED ON 25-MAR-2019
     Route: 031
     Dates: end: 20190325

REACTIONS (7)
  - Aphakia [Unknown]
  - Lens dislocation [Unknown]
  - Necrotising retinitis [Unknown]
  - Keratopathy [Unknown]
  - Retinal degeneration [Unknown]
  - Endophthalmitis [Recovering/Resolving]
  - Ligament rupture [Unknown]

NARRATIVE: CASE EVENT DATE: 20190326
